FAERS Safety Report 6825445-1 (Version None)
Quarter: 2010Q3

REPORT INFORMATION
  Report Type: 
  Country: None (occurrence: None)
  Receive Date: 20100708
  Receipt Date: 20061226
  Transmission Date: 20110219
  Serious: No
  Sender: FDA-Public Use
  Company Number: US-PFIZER INC-2007001010

PATIENT
  Sex: Male
  Weight: 99.34 kg

DRUGS (3)
  1. CHANTIX [Suspect]
     Indication: SMOKING CESSATION THERAPY
     Dates: start: 20061221
  2. XANAX [Concomitant]
  3. VICODIN [Concomitant]

REACTIONS (3)
  - ABNORMAL DREAMS [None]
  - AGITATION [None]
  - INSOMNIA [None]
